FAERS Safety Report 4574830-X (Version None)
Quarter: 2005Q1

REPORT INFORMATION
  Report Type: 
  Country: None (occurrence: None)
  Receive Date: 20050208
  Receipt Date: 20040712
  Transmission Date: 20050727
  Serious: Yes (Other)
  Sender: FDA-Public Use
  Company Number: US-GLAXOSMITHKLINE-A0517871A

PATIENT
  Age: 35 Year
  Sex: Female

DRUGS (5)
  1. PAXIL [Suspect]
     Indication: MAJOR DEPRESSION
     Dosage: 12.5MG PER DAY
     Route: 048
     Dates: end: 20040709
  2. ALEVE [Concomitant]
  3. BACTRIM [Concomitant]
  4. MULTI-VITAMIN [Concomitant]
  5. WELLBUTRIN XL [Concomitant]

REACTIONS (11)
  - ANORGASMIA [None]
  - DEPRESSIVE SYMPTOM [None]
  - DRUG WITHDRAWAL SYNDROME [None]
  - FATIGUE [None]
  - HALLUCINATION [None]
  - HEADACHE [None]
  - HYPERHIDROSIS [None]
  - INSOMNIA [None]
  - LIBIDO DECREASED [None]
  - NAUSEA [None]
  - TREMOR [None]
